FAERS Safety Report 10983225 (Version 3)
Quarter: 2015Q2

REPORT INFORMATION
  Report Type: Spontaneous
  Country: JP (occurrence: JP)
  Receive Date: 20150403
  Receipt Date: 20150430
  Transmission Date: 20150821
  Serious: Yes (Hospitalization, Other)
  Sender: FDA-Public Use
  Company Number: JP-PFIZER INC-2015112727

PATIENT
  Age: 26 Year
  Sex: Female

DRUGS (6)
  1. JZOLOFT [Suspect]
     Active Substance: SERTRALINE HYDROCHLORIDE
     Indication: DEPRESSION
     Dosage: 50 MG, 1X/DAY
     Route: 048
     Dates: start: 20141031, end: 20150202
  2. CONSTAN [Concomitant]
     Active Substance: ALPRAZOLAM
     Indication: PANIC DISORDER
  3. MEILAX [Concomitant]
     Active Substance: ETHYL LOFLAZEPATE
     Indication: PANIC DISORDER
  4. JZOLOFT [Suspect]
     Active Substance: SERTRALINE HYDROCHLORIDE
     Indication: PANIC DISORDER
     Dosage: 25 MG, 1X/DAY
     Route: 048
     Dates: start: 20150203, end: 20150217
  5. MEILAX [Concomitant]
     Active Substance: ETHYL LOFLAZEPATE
     Indication: ANXIETY
     Dosage: ONE TABLET, 1X/DAY
     Route: 048
     Dates: start: 20150114
  6. CONSTAN [Concomitant]
     Active Substance: ALPRAZOLAM
     Indication: ANXIETY
     Dosage: 0.4 MG, 3X/DAY
     Route: 048
     Dates: start: 20141031, end: 20150114

REACTIONS (2)
  - Threatened labour [Recovered/Resolved]
  - Placenta praevia [Recovered/Resolved]
